FAERS Safety Report 25874995 (Version 2)
Quarter: 2025Q4

REPORT INFORMATION
  Report Type: Report from Study
  Country: US (occurrence: US)
  Receive Date: 20251002
  Receipt Date: 20251010
  Transmission Date: 20260117
  Serious: Yes (Hospitalization)
  Sender: ABBVIE
  Company Number: US-ABBVIE-6482679

PATIENT
  Age: 73 Year
  Sex: Female
  Weight: 78.02 kg

DRUGS (5)
  1. RINVOQ [Suspect]
     Active Substance: UPADACITINIB
     Indication: Crohn^s disease
     Route: 048
     Dates: start: 20250802
  2. GLIPIZIDE [Concomitant]
     Active Substance: GLIPIZIDE
     Indication: Blood glucose
  3. METFORMIN [Concomitant]
     Active Substance: METFORMIN HYDROCHLORIDE
     Indication: Blood glucose
  4. TRIAMTERENE [Concomitant]
     Active Substance: TRIAMTERENE
     Indication: Product used for unknown indication
  5. ENALAPRIL [Concomitant]
     Active Substance: ENALAPRIL
     Indication: Blood glucose increased

REACTIONS (4)
  - Intestinal obstruction [Recovered/Resolved]
  - Chest discomfort [Recovered/Resolved]
  - Dyspepsia [Recovering/Resolving]
  - Musculoskeletal chest pain [Recovered/Resolved]

NARRATIVE: CASE EVENT DATE: 20250911
